FAERS Safety Report 12218746 (Version 1)
Quarter: 2016Q1

REPORT INFORMATION
  Report Type: Spontaneous
  Country: US (occurrence: US)
  Receive Date: 20160329
  Receipt Date: 20160329
  Transmission Date: 20160526
  Serious: No
  Sender: FDA-Public Use
  Company Number: US-CELGENEUS-USA-2016036530

PATIENT
  Age: 67 Year
  Sex: Female

DRUGS (1)
  1. OTEZLA [Suspect]
     Active Substance: APREMILAST
     Indication: POLYMYALGIA RHEUMATICA
     Dosage: 60 MILLIGRAM
     Route: 048
     Dates: start: 20140714, end: 20160324

REACTIONS (2)
  - Arthropathy [Unknown]
  - Stress [Unknown]

NARRATIVE: CASE EVENT DATE: 201512
